FAERS Safety Report 18880687 (Version 3)
Quarter: 2023Q2

REPORT INFORMATION
  Report Type: Spontaneous
  Country: US (occurrence: US)
  Receive Date: 20210212
  Receipt Date: 20230426
  Transmission Date: 20230722
  Serious: Yes (Other)
  Sender: FDA-Public Use
  Company Number: US-GILEAD-2021-0515537

PATIENT
  Sex: Male
  Weight: 81.633 kg

DRUGS (19)
  1. TRUVADA [Suspect]
     Active Substance: EMTRICITABINE\TENOFOVIR DISOPROXIL FUMARATE
     Indication: HIV infection
     Dosage: UNK
     Route: 048
     Dates: start: 201004, end: 201504
  2. KALETRA [Concomitant]
     Active Substance: LOPINAVIR\RITONAVIR
  3. TRIUMEQ [Concomitant]
     Active Substance: ABACAVIR SULFATE\DOLUTEGRAVIR SODIUM\LAMIVUDINE
  4. ALTABAX [Concomitant]
     Active Substance: RETAPAMULIN
  5. AZITHROMYCIN [Concomitant]
     Active Substance: AZITHROMYCIN
  6. CHANTIX [Concomitant]
     Active Substance: VARENICLINE TARTRATE
  7. CYCLOBENZAPRINE [Concomitant]
     Active Substance: CYCLOBENZAPRINE
  8. FLUTICASONE [Concomitant]
     Active Substance: FLUTICASONE
  9. HYDROCODONE [Concomitant]
     Active Substance: HYDROCODONE
  10. MECLIZINE [Concomitant]
     Active Substance: MECLIZINE HYDROCHLORIDE
  11. NAPROXEN [Concomitant]
     Active Substance: NAPROXEN
  12. ONDANSETRON [Concomitant]
     Active Substance: ONDANSETRON
  13. RAPAFLO [Concomitant]
     Active Substance: SILODOSIN
  14. SUPRAX [Concomitant]
     Active Substance: CEFIXIME
  15. TAMSULOSIN [Concomitant]
     Active Substance: TAMSULOSIN
  16. TRAMADOL [Concomitant]
     Active Substance: TRAMADOL
  17. CIALIS [Concomitant]
     Active Substance: TADALAFIL
  18. BONIVA [Concomitant]
     Active Substance: IBANDRONATE SODIUM
  19. AMOXICILLIN [Concomitant]
     Active Substance: AMOXICILLIN

REACTIONS (5)
  - Osteoporosis [Not Recovered/Not Resolved]
  - Emotional distress [Not Recovered/Not Resolved]
  - Anhedonia [Not Recovered/Not Resolved]
  - Anxiety [Not Recovered/Not Resolved]
  - Pain [Not Recovered/Not Resolved]

NARRATIVE: CASE EVENT DATE: 20130101
